FAERS Safety Report 18208740 (Version 2)
Quarter: 2020Q4

REPORT INFORMATION
  Report Type: Report from Study
  Country: GB (occurrence: GB)
  Receive Date: 20200828
  Receipt Date: 20201008
  Transmission Date: 20210113
  Serious: Yes (Other)
  Sender: FDA-Public Use
  Company Number: NVSC2020GB233892

PATIENT
  Sex: Female

DRUGS (2)
  1. ERELZI [Suspect]
     Active Substance: ETANERCEPT-SZZS
     Indication: ANKYLOSING SPONDYLITIS
     Dosage: 50 MG, QW (AS DIRECTED) (FORMULATION: PRE-FILLED PEN)
     Route: 065
  2. CO-CODAMOL 30/500MG TABLETS [Suspect]
     Active Substance: ACETAMINOPHEN\CODEINE PHOSPHATE
     Indication: PRODUCT USED FOR UNKNOWN INDICATION
     Dosage: UNK(30/500) ( 1 TABLET ONLY)
     Route: 065

REACTIONS (5)
  - Frustration tolerance decreased [Unknown]
  - Pain in extremity [Unknown]
  - Accident [Unknown]
  - Hand fracture [Unknown]
  - Nausea [Unknown]
